FAERS Safety Report 7982447-X (Version None)
Quarter: 2011Q4

REPORT INFORMATION
  Report Type: 
  Country: None (occurrence: None)
  Receive Date: 20111214
  Receipt Date: 20111214
  Transmission Date: 20120403
  Serious: Yes (Death)
  Sender: FDA-Public Use
  Company Number: None

PATIENT
  Age: 75 Year
  Sex: Male
  Weight: 82.5547 kg

DRUGS (5)
  1. TARCEVA [Suspect]
     Indication: NON-SMALL CELL LUNG CANCER
     Dosage: 150MG, DAILY, ORAL
     Route: 048
     Dates: start: 20110827, end: 20111129
  2. ASPIRIN [Concomitant]
  3. MULTI-VITAMINS [Concomitant]
  4. RADIATION TREATMENT [Concomitant]
  5. PLAVIX [Concomitant]

REACTIONS (4)
  - FATIGUE [None]
  - PYREXIA [None]
  - DYSPNOEA [None]
  - COUGH [None]
